FAERS Safety Report 19381704 (Version 2)
Quarter: 2021Q2

REPORT INFORMATION
  Report Type: Report from Study
  Country: DE (occurrence: DE)
  Receive Date: 20210607
  Receipt Date: 20210609
  Transmission Date: 20210717
  Serious: Yes (Hospitalization)
  Sender: FDA-Public Use
  Company Number: DE-ROCHE-2815118

PATIENT
  Age: 29 Year
  Sex: Female
  Weight: 60 kg

DRUGS (23)
  1. APREPITANT. [Concomitant]
     Active Substance: APREPITANT
     Dates: start: 20210409, end: 20210411
  2. PACLITAXEL. [Suspect]
     Active Substance: PACLITAXEL
     Indication: TRIPLE NEGATIVE BREAST CANCER
     Dosage: LAST DOSE OF PACLITAXEL PRIOR TO SAE: 08/APR/2021 AND 06/MAY/2021
     Route: 042
     Dates: start: 20210330
  3. MONO EMBOLEX [Concomitant]
     Active Substance: CERTOPARIN SODIUM
     Dosage: 30.000 IE DOSE
     Dates: start: 20210409, end: 20210411
  4. EMEND [Concomitant]
     Active Substance: APREPITANT
     Dosage: 125/80/80 MG
     Dates: start: 20210408
  5. STEROFUNDIN [Concomitant]
     Active Substance: CALCIUM CHLORIDE\MAGNESIUM CHLORIDE\POTASSIUM CHLORIDE\SODIUM ACETATE\SODIUM CHLORIDE
     Dates: start: 20210506, end: 20210509
  6. CARBOPLATIN. [Suspect]
     Active Substance: CARBOPLATIN
     Indication: TRIPLE NEGATIVE BREAST CANCER
     Dosage: LAST DOSE OF CARBOPLATIN PRIOR TO SAE: 08/APR/2021 AND 06/MAY/2021
     Route: 042
     Dates: start: 20210330
  7. ZOFRAN [Concomitant]
     Active Substance: ONDANSETRON HYDROCHLORIDE
     Dates: start: 20210409, end: 20210410
  8. PANTOPRAZOL [Concomitant]
     Active Substance: PANTOPRAZOLE SODIUM
     Dates: start: 20210415
  9. CLINDAMYCIN. [Concomitant]
     Active Substance: CLINDAMYCIN
     Dates: start: 20210506, end: 20210509
  10. BLOOD TRANSFUSION [Concomitant]
     Active Substance: HUMAN RED BLOOD CELL
     Dates: start: 20210506, end: 20210506
  11. PFIZER?BIONTECH COVID?19 VACCINE [Suspect]
     Active Substance: TOZINAMERAN
     Indication: PRODUCT USED FOR UNKNOWN INDICATION
     Route: 065
     Dates: start: 20210401, end: 20210401
  12. NACL [Concomitant]
     Active Substance: SODIUM CHLORIDE
     Dates: start: 20210408
  13. PARACETAMOL [Concomitant]
     Active Substance: ACETAMINOPHEN
  14. FERRO SANOL [Concomitant]
     Active Substance: FERROUS GLYCINE SULFATE
     Dosage: 15 DROPS
     Dates: start: 20210515
  15. ZOLADEX [Concomitant]
     Active Substance: GOSERELIN ACETATE
     Dates: start: 20210309
  16. PERFALGAN [Concomitant]
     Active Substance: ACETAMINOPHEN
     Dates: start: 20210415
  17. FENISTIL [Concomitant]
     Active Substance: DIMETHINDENE
     Dosage: 1 AMP DOSE
     Dates: start: 20210408
  18. ALOXI [Concomitant]
     Active Substance: PALONOSETRON HYDROCHLORIDE
     Dosage: 1 AMP DOSE
     Dates: start: 20210408
  19. ZOFRAN [Concomitant]
     Active Substance: ONDANSETRON HYDROCHLORIDE
  20. ATEZOLIZUMAB. [Suspect]
     Active Substance: ATEZOLIZUMAB
     Indication: TRIPLE NEGATIVE BREAST CANCER
     Dosage: LAST DOSE OF ATEZOLIZUMAB PRIOR TO SAE (SEVERE ADVERSE EVENT): 30/MAR/2021 AND 22/APR/2021
     Route: 041
     Dates: start: 20210318
  21. DEXAMETHASON [Concomitant]
     Active Substance: DEXAMETHASONE
     Dates: start: 20210408
  22. CIMETIDIN [Concomitant]
     Dates: start: 20210408
  23. SKID [Concomitant]
     Active Substance: MINOCYCLINE HYDROCHLORIDE
     Dates: start: 20210409, end: 20210411

REACTIONS (3)
  - Hypersensitivity [Recovered/Resolved]
  - Hypersensitivity [Recovered/Resolved]
  - Pyrexia [Recovered/Resolved]

NARRATIVE: CASE EVENT DATE: 20210408
